FAERS Safety Report 9526197 (Version 1)
Quarter: 2013Q3

REPORT INFORMATION
  Report Type: Spontaneous
  Country: US (occurrence: US)
  Receive Date: 20130916
  Receipt Date: 20130916
  Transmission Date: 20140515
  Serious: No
  Sender: FDA-Public Use
  Company Number: US-009507513-1309USA006354

PATIENT
  Sex: Female

DRUGS (1)
  1. NUVARING [Suspect]
     Dosage: 1 RING, 3 WEEKS IN AND 1 WEEK RING FREE PERIOD
     Route: 067

REACTIONS (1)
  - Inappropriate schedule of drug administration [Unknown]
